FAERS Safety Report 12451166 (Version 1)
Quarter: 2016Q2

REPORT INFORMATION
  Report Type: Spontaneous
  Country: US (occurrence: None)
  Receive Date: 20160608
  Receipt Date: 20160608
  Transmission Date: 20160815
  Serious: Yes (Hospitalization)
  Sender: FDA-Public Use
  Company Number: None

PATIENT
  Age: 2 Year
  Sex: Female
  Weight: 10.5 kg

DRUGS (4)
  1. CYCLOPHOSPHAMIDE. [Suspect]
     Active Substance: CYCLOPHOSPHAMIDE
     Dates: end: 20160528
  2. VINCRISTINE SULFATE. [Suspect]
     Active Substance: VINCRISTINE SULFATE
     Dates: end: 20160603
  3. CISPLATIN. [Suspect]
     Active Substance: CISPLATIN
     Dates: end: 20160526
  4. ETOPOSIDE (VP-16) [Suspect]
     Active Substance: ETOPOSIDE
     Dates: end: 20160528

REACTIONS (7)
  - Electrolyte imbalance [None]
  - Heart rate increased [None]
  - Anaemia [None]
  - Pyrexia [None]
  - Neutrophil count decreased [None]
  - Blood pressure decreased [None]
  - Bone marrow failure [None]

NARRATIVE: CASE EVENT DATE: 20160605
